FAERS Safety Report 7558654-7 (Version None)
Quarter: 2011Q2

REPORT INFORMATION
  Report Type: 
  Country: None (occurrence: None)
  Receive Date: 20110621
  Receipt Date: 20110610
  Transmission Date: 20111010
  Serious: No
  Sender: FDA-Public Use
  Company Number: US-BIOGENIDEC-2011BI018919

PATIENT
  Sex: Female
  Weight: 77 kg

DRUGS (13)
  1. TOPAMAX [Concomitant]
     Indication: MIGRAINE PROPHYLAXIS
  2. COPAXONE [Concomitant]
     Indication: PRODUCT USED FOR UNKNOWN INDICATION
     Dates: start: 20080101
  3. M.V.I. [Concomitant]
     Indication: PRODUCT USED FOR UNKNOWN INDICATION
  4. IRON INFUSIONS [Concomitant]
     Indication: PRODUCT USED FOR UNKNOWN INDICATION
  5. TYSABRI [Suspect]
     Indication: MULTIPLE SCLEROSIS
     Route: 042
     Dates: start: 20080520
  6. REBIF [Concomitant]
     Indication: PRODUCT USED FOR UNKNOWN INDICATION
     Dates: end: 20080101
  7. NADOLOL [Concomitant]
     Indication: HEADACHE
     Dates: start: 20070904
  8. CRYSTALLINE VIT B12 INJ [Concomitant]
     Indication: PRODUCT USED FOR UNKNOWN INDICATION
  9. VITAMIN D [Concomitant]
     Indication: PRODUCT USED FOR UNKNOWN INDICATION
  10. PREDNISONE [Concomitant]
     Indication: PRODUCT USED FOR UNKNOWN INDICATION
  11. TRIPHASIL-21 [Concomitant]
     Indication: CONTRACEPTION
  12. LEXAPRO [Concomitant]
     Indication: DEPRESSION
  13. BACLOFEN [Concomitant]
     Indication: MUSCLE SPASMS

REACTIONS (22)
  - BACK PAIN [None]
  - WEIGHT DECREASED [None]
  - ABDOMINAL HERNIA [None]
  - HEADACHE [None]
  - MENTAL IMPAIRMENT [None]
  - EYE MOVEMENT DISORDER [None]
  - PARAESTHESIA [None]
  - FATIGUE [None]
  - SINUS DISORDER [None]
  - MUSCLE SPASMS [None]
  - DIPLOPIA [None]
  - CIRCADIAN RHYTHM SLEEP DISORDER [None]
  - MIGRAINE [None]
  - BLEPHAROSPASM [None]
  - HYPERHIDROSIS [None]
  - DEPRESSION [None]
  - PYREXIA [None]
  - HAEMOLYSIS [None]
  - SOMNOLENCE [None]
  - STRESS [None]
  - CHILLS [None]
  - APHASIA [None]
